FAERS Safety Report 21619363 (Version 5)
Quarter: 2023Q2

REPORT INFORMATION
  Report Type: Report from Study
  Country: RU (occurrence: RU)
  Receive Date: 20221120
  Receipt Date: 20230506
  Transmission Date: 20230721
  Serious: Yes (Death, Other)
  Sender: FDA-Public Use
  Company Number: RU-002147023-NVSC2022RU152921

PATIENT
  Age: 72 Year
  Sex: Female
  Weight: 76 kg

DRUGS (4)
  1. KISQALI FEMARA CO-PACK [Suspect]
     Active Substance: LETROZOLE\RIBOCICLIB
     Indication: Breast cancer
     Dosage: 600 MG
     Route: 048
     Dates: start: 20220207, end: 20220411
  2. KISQALI FEMARA CO-PACK [Suspect]
     Active Substance: LETROZOLE\RIBOCICLIB
     Dosage: 600 MG
     Route: 048
     Dates: start: 20220513, end: 20220720
  3. KISQALI FEMARA CO-PACK [Suspect]
     Active Substance: LETROZOLE\RIBOCICLIB
     Dosage: 600 MG, QD
     Route: 065
  4. DEXAMETHASONE [Suspect]
     Active Substance: DEXAMETHASONE
     Indication: Brain oedema
     Dosage: 8 MG, QD
     Route: 065
     Dates: start: 20220920, end: 20220921

REACTIONS (5)
  - Hyperglycaemia [Fatal]
  - Asthenia [Fatal]
  - Hypotension [Fatal]
  - Hepatotoxicity [Recovered/Resolved]
  - Hepatotoxicity [Recovered/Resolved]

NARRATIVE: CASE EVENT DATE: 20220408
